FAERS Safety Report 6923076-6 (Version None)
Quarter: 2010Q3

REPORT INFORMATION
  Report Type: 
  Country: None (occurrence: None)
  Receive Date: 20100813
  Receipt Date: 20100805
  Transmission Date: 20110219
  Serious: Yes (Other)
  Sender: FDA-Public Use
  Company Number: US-PFIZER INC-2010099330

PATIENT
  Sex: Male

DRUGS (3)
  1. CELEBREX [Suspect]
     Dosage: UNK
  2. DITROPAN [Concomitant]
     Dosage: UNK
  3. PROSCAR [Concomitant]
     Dosage: UNK

REACTIONS (4)
  - ANAEMIA [None]
  - HAEMATURIA [None]
  - HAEMOGLOBIN ABNORMAL [None]
  - PROSTATIC DISORDER [None]
